FAERS Safety Report 23395042 (Version 2)
Quarter: 2024Q2

REPORT INFORMATION
  Report Type: Spontaneous
  Country: BE (occurrence: BE)
  Receive Date: 20240112
  Receipt Date: 20240429
  Transmission Date: 20240716
  Serious: Yes (Other)
  Sender: FDA-Public Use
  Company Number: BE-TEVA-VS-3139585

PATIENT
  Age: 61 Year
  Sex: Female

DRUGS (1)
  1. TRISENOX [Suspect]
     Active Substance: ARSENIC TRIOXIDE
     Indication: Acute promyelocytic leukaemia
     Route: 065
     Dates: start: 2023

REACTIONS (1)
  - Acute promyelocytic leukaemia [Unknown]

NARRATIVE: CASE EVENT DATE: 20231101
